FAERS Safety Report 21125132 (Version 1)
Quarter: 2022Q3

REPORT INFORMATION
  Report Type: Report from Study
  Country: US (occurrence: US)
  Receive Date: 20220725
  Receipt Date: 20220725
  Transmission Date: 20221026
  Serious: Yes (Other)
  Sender: FDA-Public Use
  Company Number: US-TAKEDA-US202021742

PATIENT
  Sex: Female

DRUGS (2)
  1. HUMAN IMMUNOGLOBULIN G [Suspect]
     Active Substance: HUMAN IMMUNOGLOBULIN G
     Indication: Primary immunodeficiency syndrome
     Dosage: 10 GRAM, 1/WEEK
     Route: 058
  2. METHOTREXATE [Suspect]
     Active Substance: METHOTREXATE
     Indication: Product used for unknown indication
     Dosage: UNK
     Route: 065

REACTIONS (10)
  - Nephrolithiasis [Unknown]
  - Arthritis [Unknown]
  - Injection site abscess [Unknown]
  - Sinusitis [Unknown]
  - Feeling abnormal [Unknown]
  - Multiple allergies [Unknown]
  - Product dose omission issue [Unknown]
  - COVID-19 [Unknown]
  - Oesophagitis [Unknown]
  - Pain [Unknown]

NARRATIVE: CASE EVENT DATE: 20200101
